FAERS Safety Report 6603770-7 (Version None)
Quarter: 2010Q1

REPORT INFORMATION
  Report Type: 
  Country: None (occurrence: None)
  Receive Date: 20100226
  Receipt Date: 20090117
  Transmission Date: 20100710
  Serious: No
  Sender: FDA-Public Use
  Company Number: A0764896A

PATIENT
  Sex: Male

DRUGS (1)
  1. LAMICTAL CD [Suspect]
     Indication: EPILEPSY
     Route: 048

REACTIONS (2)
  - ABNORMAL DREAMS [None]
  - DECREASED APPETITE [None]
